FAERS Safety Report 4783808-2 (Version None)
Quarter: 2005Q3

REPORT INFORMATION
  Report Type: 
  Country: None (occurrence: None)
  Receive Date: 20050929
  Receipt Date: 20050919
  Transmission Date: 20060218
  Serious: Yes (Hospitalization)
  Sender: FDA-Public Use
  Company Number: US-MERCK-0509USA03026

PATIENT
  Age: 65 Year
  Sex: Female
  Weight: 107 kg

DRUGS (8)
  1. VIOXX [Suspect]
     Indication: ARTHRITIS
     Route: 048
     Dates: start: 20040331
  2. VIOXX [Suspect]
     Route: 048
     Dates: end: 20040401
  3. GLUCOTROL [Concomitant]
     Indication: DIABETES MELLITUS
     Route: 048
  4. NEXIUM [Concomitant]
     Route: 048
  5. GLUCOPHAGE [Concomitant]
     Indication: DIABETES MELLITUS
     Route: 048
  6. IMDUR [Concomitant]
     Route: 048
  7. MONOPRIL [Concomitant]
     Route: 048
  8. LASIX [Concomitant]
     Route: 048

REACTIONS (14)
  - ABDOMINAL HERNIA [None]
  - ANGINA PECTORIS [None]
  - AORTIC VALVE STENOSIS [None]
  - CARDIOMEGALY [None]
  - CATARACT [None]
  - CORONARY ARTERY DISEASE [None]
  - DIABETES MELLITUS [None]
  - DRUG DOSE OMISSION [None]
  - HYPERTENSION [None]
  - MYOCARDIAL INFARCTION [None]
  - PROTEINURIA [None]
  - RETCHING [None]
  - TREATMENT NONCOMPLIANCE [None]
  - VENTRICULAR EXTRASYSTOLES [None]
